FAERS Safety Report 12491837 (Version 1)
Quarter: 2016Q2

REPORT INFORMATION
  Report Type: Spontaneous
  Country: US (occurrence: None)
  Receive Date: 20160622
  Receipt Date: 20160622
  Transmission Date: 20160815
  Serious: Yes (Other)
  Sender: FDA-Public Use
  Company Number: None

PATIENT
  Age: 71 Year
  Sex: Female
  Weight: 66.7 kg

DRUGS (14)
  1. FUROSEMIDE. [Concomitant]
     Active Substance: FUROSEMIDE
  2. ASPIRIN. [Concomitant]
     Active Substance: ASPIRIN
  3. NORCO [Concomitant]
     Active Substance: ACETAMINOPHEN\HYDROCODONE BITARTRATE
  4. NILOTINIB [Concomitant]
     Active Substance: NILOTINIB
  5. DILTIAZEM [Concomitant]
     Active Substance: DILTIAZEM
  6. CALCIUM CARBONATE/VITAMIN D [Concomitant]
     Active Substance: CALCIUM CARBONATE\VITAMIN D
  7. CARVEDIOLOL [Concomitant]
  8. ESOMEPRAZOLE [Concomitant]
     Active Substance: ESOMEPRAZOLE
  9. LEVOTHYROXINE. [Concomitant]
     Active Substance: LEVOTHYROXINE
  10. VITAMIN E [Concomitant]
     Active Substance: .ALPHA.-TOCOPHEROL
  11. FERRIC CARBOXYMALTOSE [Suspect]
     Active Substance: FERRIC CARBOXYMALTOSE
     Indication: IRON DEFICIENCY ANAEMIA
     Dosage: 750 UG  WEEKLY X2  INTRAVENOUS BOLUS
     Route: 040
     Dates: start: 20160331, end: 20160408
  12. MOMETASONE-FORMOTEROL [Concomitant]
  13. ALBUTEROL INHALER [Concomitant]
     Active Substance: ALBUTEROL
  14. LOSARTAN. [Concomitant]
     Active Substance: LOSARTAN

REACTIONS (1)
  - Blood phosphorus decreased [None]

NARRATIVE: CASE EVENT DATE: 20160408
